FAERS Safety Report 10678071 (Version 1)
Quarter: 2014Q4

REPORT INFORMATION
  Report Type: Spontaneous
  Country: US (occurrence: None)
  Receive Date: 20141223
  Receipt Date: 20141223
  Transmission Date: 20150529
  Serious: Yes (Life-Threatening, Hospitalization)
  Sender: FDA-Public Use
  Company Number: NSR_01730_2014

PATIENT
  Age: 23 Year
  Sex: Female

DRUGS (3)
  1. TRAMADOL [Suspect]
     Active Substance: TRAMADOL
     Indication: BACK PAIN
  2. METAXALONE. [Suspect]
     Active Substance: METAXALONE
     Indication: BACK PAIN
  3. NAPROXEN. [Suspect]
     Active Substance: NAPROXEN
     Indication: BACK PAIN
     Dosage: DF

REACTIONS (19)
  - Mydriasis [None]
  - Muscle rigidity [None]
  - Clonus [None]
  - Autonomic nervous system imbalance [None]
  - Status epilepticus [None]
  - Intentional overdose [None]
  - Heart rate increased [None]
  - Respiratory depression [None]
  - Unresponsive to stimuli [None]
  - Hyperhidrosis [None]
  - Hyperthermia [None]
  - Serotonin syndrome [None]
  - Miosis [None]
  - Hypotonia [None]
  - Hypoxia [None]
  - Somnolence [None]
  - Hyperreflexia [None]
  - Blood pressure increased [None]
  - Seizure [None]
